FAERS Safety Report 7041424-6 (Version None)
Quarter: 2010Q4

REPORT INFORMATION
  Report Type: 
  Country: None (occurrence: None)
  Receive Date: 20101013
  Receipt Date: 20100929
  Transmission Date: 20110411
  Serious: Yes (Death, Other)
  Sender: FDA-Public Use
  Company Number: US-ROCHE-705143

PATIENT
  Sex: Female
  Weight: 31.8 kg

DRUGS (33)
  1. CAPECITABINE [Suspect]
     Dosage: TWO CYCLES
     Route: 048
     Dates: start: 20081218, end: 20090107
  2. CAPECITABINE [Suspect]
     Route: 048
     Dates: start: 20090615
  3. CAPECITABINE [Suspect]
     Dosage: TWO TABLETS IN MORNING
     Route: 048
     Dates: start: 20100506
  4. CAPECITABINE [Suspect]
     Route: 048
     Dates: start: 20100101, end: 20100101
  5. BEVACIZUMAB [Suspect]
     Route: 042
     Dates: start: 20070601
  6. BEVACIZUMAB [Suspect]
     Route: 042
     Dates: start: 20070801, end: 20070901
  7. BEVACIZUMAB [Suspect]
     Route: 042
     Dates: start: 20071001
  8. BEVACIZUMAB [Suspect]
     Route: 042
     Dates: start: 20081218, end: 20090107
  9. BEVACIZUMAB [Suspect]
     Route: 042
     Dates: start: 20090128, end: 20090513
  10. BEVACIZUMAB [Suspect]
     Route: 042
     Dates: start: 20090527, end: 20090901
  11. BEVACIZUMAB [Suspect]
     Route: 042
     Dates: start: 20100101
  12. BEVACIZUMAB [Suspect]
     Route: 042
     Dates: start: 20100505, end: 20100101
  13. ELOXATIN [Suspect]
     Route: 042
     Dates: start: 20070701, end: 20070701
  14. ELOXATIN [Suspect]
     Route: 042
     Dates: start: 20070101, end: 20070101
  15. ELOXATIN [Suspect]
     Route: 042
     Dates: start: 20080601, end: 20080601
  16. ELOXATIN [Suspect]
     Route: 042
     Dates: start: 20081218, end: 20081218
  17. ELOXATIN [Suspect]
     Route: 042
     Dates: end: 20090107
  18. ELOXATIN [Suspect]
     Dosage: 7 CYCLES
     Route: 042
     Dates: start: 20090128
  19. ELOXATIN [Suspect]
     Route: 042
     Dates: start: 20090513, end: 20090513
  20. ELOXATIN [Suspect]
     Dosage: DOSE LOWERED
     Route: 042
     Dates: start: 20090101, end: 20090101
  21. ELOXATIN [Suspect]
     Route: 042
     Dates: start: 20100101
  22. ELOXATIN [Suspect]
     Route: 042
     Dates: start: 20100501
  23. FLUOROURACIL [Suspect]
     Dosage: 7 CYCLES
     Route: 065
     Dates: start: 20090128, end: 20090513
  24. FLUOROURACIL [Suspect]
     Dosage: BOLUS
     Route: 065
     Dates: start: 20090527, end: 20090901
  25. FLUOROURACIL [Suspect]
     Route: 065
     Dates: start: 20100101
  26. LEUCOVORIN CALCIUM [Suspect]
     Dosage: 7 CYCLES
     Route: 065
     Dates: start: 20090128, end: 20090513
  27. LEUCOVORIN CALCIUM [Suspect]
     Route: 065
     Dates: start: 20090527, end: 20090901
  28. LEUCOVORIN CALCIUM [Suspect]
     Route: 065
     Dates: start: 20100101
  29. IRINOTECAN HCL [Suspect]
     Route: 065
     Dates: start: 20100101
  30. IRINOTECAN HCL [Suspect]
     Dosage: FORM: SOLUTION FOR INFUSION
     Route: 065
     Dates: start: 20100505
  31. ZOFRAN [Concomitant]
  32. DEXAMETHASONE [Concomitant]
  33. PRILOSEC [Concomitant]

REACTIONS (32)
  - ABDOMINAL DISCOMFORT [None]
  - ABDOMINAL DISTENSION [None]
  - ABDOMINAL PAIN UPPER [None]
  - APHAGIA [None]
  - ASCITES [None]
  - BACK PAIN [None]
  - DEATH [None]
  - DECREASED APPETITE [None]
  - DEFORMITY [None]
  - DRUG HYPERSENSITIVITY [None]
  - DRUG INTOLERANCE [None]
  - DRUG TOXICITY [None]
  - EPISTAXIS [None]
  - FATIGUE [None]
  - FLANK PAIN [None]
  - INCORRECT DOSE ADMINISTERED [None]
  - LIMB DEFORMITY [None]
  - LUNG DISORDER [None]
  - MALIGNANT NEOPLASM PROGRESSION [None]
  - NEPHROLITHIASIS [None]
  - NEUROPATHY PERIPHERAL [None]
  - PAIN IN EXTREMITY [None]
  - PAIN IN JAW [None]
  - PARAESTHESIA [None]
  - SKIN EXFOLIATION [None]
  - SKIN IRRITATION [None]
  - STOMATITIS [None]
  - TREMOR [None]
  - VOMITING [None]
  - WEIGHT DECREASED [None]
  - WHITE BLOOD CELL COUNT DECREASED [None]
  - WOUND DEHISCENCE [None]
